FAERS Safety Report 5478252-9 (Version None)
Quarter: 2007Q4

REPORT INFORMATION
  Report Type: 
  Country: None (occurrence: None)
  Receive Date: 20071005
  Receipt Date: 20070711
  Transmission Date: 20080405
  Serious: No
  Sender: FDA-Public Use
  Company Number: US-BRISTOL-MYERS SQUIBB COMPANY-13819529

PATIENT
  Sex: Female

DRUGS (5)
  1. AVAPRO [Suspect]
  2. OXYCODONE HCL ER [Concomitant]
     Indication: POST HERPETIC NEURALGIA
  3. OXYCODONE HCL + ACETAMINOPHEN [Concomitant]
     Indication: POST HERPETIC NEURALGIA
  4. TRIAMTERENE AND HYDROCHLOROTHIAZIDE [Concomitant]
  5. ESTROGEN [Concomitant]

REACTIONS (2)
  - BREAST ENLARGEMENT [None]
  - JOINT SWELLING [None]
